FAERS Safety Report 5474970-7 (Version None)
Quarter: 2007Q3

REPORT INFORMATION
  Report Type: 
  Country: None (occurrence: None)
  Receive Date: 20070831
  Receipt Date: 20070628
  Transmission Date: 20080115
  Serious: No
  Sender: FDA-Public Use
  Company Number: 241505

PATIENT
  Age: 85 Year
  Sex: Female
  Weight: 90.7 kg

DRUGS (3)
  1. LUCENTIS [Suspect]
     Indication: MACULAR DEGENERATION
     Dosage: 1/MONTH, INTRAVITREAL
  2. SYNTHROID [Concomitant]
  3. PREVACID [Concomitant]

REACTIONS (4)
  - BLEPHARITIS [None]
  - DRY EYE [None]
  - RASH [None]
  - STAPHYLOCOCCAL INFECTION [None]
